FAERS Safety Report 25604396 (Version 1)
Quarter: 2025Q3

REPORT INFORMATION
  Report Type: Report from Study
  Country: US (occurrence: US)
  Receive Date: 20250725
  Receipt Date: 20250725
  Transmission Date: 20251021
  Serious: No
  Sender: SUNOVION
  Company Number: US-SUMITOMO PHARMA SWITZERLAND GMBH-2025SPA008981

PATIENT

DRUGS (4)
  1. ORGOVYX [Suspect]
     Active Substance: RELUGOLIX
     Indication: Prostate cancer
     Route: 048
     Dates: start: 20220714, end: 202311
  2. ORGOVYX [Suspect]
     Active Substance: RELUGOLIX
     Route: 048
     Dates: start: 2025
  3. ABIRATERONE [Concomitant]
     Active Substance: ABIRATERONE
     Route: 065
     Dates: start: 202207, end: 202311
  4. ABIRATERONE [Concomitant]
     Active Substance: ABIRATERONE
     Route: 065
     Dates: start: 2025

REACTIONS (2)
  - Hot flush [Recovered/Resolved]
  - Therapy interrupted [Recovered/Resolved]

NARRATIVE: CASE EVENT DATE: 20231101
